FAERS Safety Report 7238126-X (Version None)
Quarter: 2011Q1

REPORT INFORMATION
  Report Type: 
  Country: None (occurrence: None)
  Receive Date: 20110121
  Receipt Date: 20110110
  Transmission Date: 20110831
  Serious: Yes (Hospitalization)
  Sender: FDA-Public Use
  Company Number: TW-ELI_LILLY_AND_COMPANY-TW201101002709

PATIENT
  Age: 52 Year
  Sex: Male
  Weight: 74 kg

DRUGS (6)
  1. GEMZAR [Suspect]
     Indication: CHEMOTHERAPY
     Dosage: 1920 MG, SINGLE DOSE
     Route: 042
     Dates: start: 20101204
  2. AVASTIN [Concomitant]
     Indication: CHEMOTHERAPY
     Dates: start: 20101212
  3. GASTRO-TIMELETS [Concomitant]
     Indication: NAUSEA
     Dates: start: 20101204, end: 20101211
  4. ALERMINE [Concomitant]
     Indication: CHEMOTHERAPY
     Dates: start: 20101212
  5. DEXAMETHASONE [Concomitant]
     Indication: CHEMOTHERAPY
     Dates: start: 20101204, end: 20101212
  6. SODIUM CHLORIDE [Concomitant]
     Indication: CHEMOTHERAPY
     Dosage: 0.9 %, UNK
     Dates: start: 20101204, end: 20101212

REACTIONS (1)
  - PNEUMONIA [None]
